FAERS Safety Report 6215980-1 (Version None)
Quarter: 2009Q2

REPORT INFORMATION
  Report Type: 
  Country: None (occurrence: None)
  Receive Date: 20090603
  Receipt Date: 20090603
  Transmission Date: 20091009
  Serious: No
  Sender: FDA-Public Use
  Company Number: None

PATIENT
  Age: 49 Year
  Sex: Female
  Weight: 90.2658 kg

DRUGS (2)
  1. TRAZODONE HCL [Suspect]
     Indication: BIPOLAR DISORDER
     Dosage: 300 MG H.S. P.O.
     Route: 048
     Dates: start: 20081201
  2. TRAZODONE HCL [Suspect]
     Indication: BIPOLAR DISORDER
     Dosage: 300 MG H.S. P.O.
     Route: 048
     Dates: start: 20090401

REACTIONS (2)
  - MANIA [None]
  - MENTAL DISORDER [None]
